FAERS Safety Report 20668663 (Version 4)
Quarter: 2022Q2

REPORT INFORMATION
  Report Type: Report from Study
  Country: US (occurrence: US)
  Receive Date: 20220404
  Receipt Date: 20220512
  Transmission Date: 20220721
  Serious: Yes (Hospitalization)
  Sender: FDA-Public Use
  Company Number: US-Global Blood Therapeutics Inc-US-GBT-22-01780

PATIENT
  Age: 6 Year
  Sex: Male

DRUGS (8)
  1. PRBC transfusion [Concomitant]
     Indication: Sickle cell disease
     Dosage: 1 UNIT
     Dates: start: 20220317, end: 20220317
  2. PRBC transfusion [Concomitant]
     Dosage: 1 UNIT
     Dates: start: 20220318, end: 20220318
  3. HYDROXYUREA [Concomitant]
     Active Substance: HYDROXYUREA
     Indication: Sickle cell disease
     Route: 048
     Dates: start: 20160828
  4. MIRALAX [Concomitant]
     Active Substance: POLYETHYLENE GLYCOL 3350
     Indication: Constipation
     Route: 048
     Dates: start: 20220313
  5. MORPHINE [Concomitant]
     Active Substance: MORPHINE
     Indication: Abdominal pain
     Route: 042
     Dates: start: 20220313, end: 20220313
  6. FLEET ENEMA [Concomitant]
     Active Substance: SODIUM PHOSPHATE, DIBASIC\SODIUM PHOSPHATE, MONOBASIC
     Indication: Constipation
     Dosage: 1 ENEMA
     Route: 054
     Dates: start: 20220313, end: 20220313
  7. ROCEPHIN [Concomitant]
     Active Substance: CEFTRIAXONE SODIUM
     Indication: Pyrexia
     Route: 042
     Dates: start: 20220314, end: 20220314
  8. ZOFRAN [Concomitant]
     Active Substance: ONDANSETRON HYDROCHLORIDE
     Indication: Nausea
     Route: 042
     Dates: start: 20220314, end: 20220314

REACTIONS (2)
  - Acute chest syndrome [Recovered/Resolved]
  - Hypersplenism [Recovered/Resolved]

NARRATIVE: CASE EVENT DATE: 20220317
